FAERS Safety Report 8608419-X (Version None)
Quarter: 2012Q3

REPORT INFORMATION
  Report Type: 
  Country: None (occurrence: None)
  Receive Date: 20120821
  Receipt Date: 20120810
  Transmission Date: 20120928
  Serious: Yes (Hospitalization, Other)
  Sender: FDA-Public Use
  Company Number: US-ACTELION-A-US2012-68274

PATIENT
  Age: 51 Year
  Sex: Male

DRUGS (1)
  1. TRACLEER [Suspect]
     Indication: PULMONARY ARTERIAL HYPERTENSION
     Dosage: UNK
     Route: 048

REACTIONS (5)
  - FALL [None]
  - ANKLE OPERATION [None]
  - ANKLE FRACTURE [None]
  - LUMBAR VERTEBRAL FRACTURE [None]
  - LOWER LIMB FRACTURE [None]
